FAERS Safety Report 9780000 (Version 3)
Quarter: 2014Q1

REPORT INFORMATION
  Report Type: Spontaneous
  Country: US (occurrence: US)
  Receive Date: 20131223
  Receipt Date: 20140311
  Transmission Date: 20141002
  Serious: Yes (Other)
  Sender: FDA-Public Use
  Company Number: US-GLAXOSMITHKLINE-A1054285A

PATIENT
  Age: 65 Year
  Sex: Male

DRUGS (16)
  1. AVODART [Suspect]
     Indication: PROSTATOMEGALY
     Dosage: 1CAP PER DAY
     Route: 048
     Dates: start: 2011
  2. UNKNOWN DEVICE [Suspect]
     Indication: CATHETER PLACEMENT
  3. ASPIRIN [Concomitant]
  4. FIBERCON [Concomitant]
  5. LEVBID [Concomitant]
  6. HCTZ [Concomitant]
  7. TENORMIN [Concomitant]
  8. VASOTEC [Concomitant]
  9. ZOCOR [Concomitant]
  10. BACTRIM [Concomitant]
  11. FLONASE [Concomitant]
  12. ANTIBIOTIC [Concomitant]
  13. VITAMIN [Concomitant]
  14. FLONASE [Concomitant]
     Indication: RHINITIS
  15. BACTRIM [Concomitant]
     Indication: RHINITIS
  16. FLOMAX [Concomitant]

REACTIONS (7)
  - Atrial fibrillation [Recovered/Resolved]
  - Heart rate irregular [Recovering/Resolving]
  - Medical device pain [Unknown]
  - Stress [Unknown]
  - Tension [Unknown]
  - Insomnia [Unknown]
  - Dyspnoea [Unknown]
